FAERS Safety Report 9908139 (Version 1)
Quarter: 2013Q2

REPORT INFORMATION
  Report Type: Spontaneous
  Country: US (occurrence: None)
  Receive Date: 20130305
  Receipt Date: 20130305
  Transmission Date: 20140414
  Serious: Yes (Other)
  Sender: FDA-Public Use
  Company Number: 163-21880-12071338

PATIENT
  Age: 65 Year
  Sex: Male
  Weight: 71.48 kg

DRUGS (4)
  1. REVLIMID (LENALIDOMIDE) (CAPSULES) [Suspect]
     Indication: PLASMA CELL MYELOMA
     Dosage: 25 MG, X 14 DAYS, PO
     Route: 048
     Dates: start: 20120312, end: 20120514
  2. METOPROLOL SUCCINATE (METOPROLOL SUCCINATE) (UNKNOWN) [Concomitant]
  3. OMEPRAZOLE (OMEPRAZOLE) (UNKNOWN) [Concomitant]
  4. REMERON (MIRTAZAPINE) (UNKNOWN) [Concomitant]

REACTIONS (1)
  - Pneumonitis [None]
